FAERS Safety Report 4976617-2 (Version None)
Quarter: 2006Q2

REPORT INFORMATION
  Report Type: 
  Country: None (occurrence: None)
  Receive Date: 20060419
  Receipt Date: 20051021
  Transmission Date: 20061013
  Serious: Yes (Hospitalization, Disabling)
  Sender: FDA-Public Use
  Company Number: US-MERCK-0510USA08418

PATIENT
  Age: 60 Year
  Sex: Male
  Weight: 124 kg

DRUGS (7)
  1. VIOXX [Suspect]
     Indication: LIMB INJURY
     Route: 048
     Dates: start: 20021101, end: 20040101
  2. GLYNASE [Concomitant]
     Route: 048
  3. ZESTRIL [Concomitant]
     Route: 048
  4. AVANDIA [Concomitant]
     Route: 048
  5. ASPIRIN [Concomitant]
     Route: 048
  6. STARLIX [Concomitant]
     Route: 048
  7. PLAVIX [Concomitant]
     Route: 048

REACTIONS (6)
  - ACUTE MYOCARDIAL INFARCTION [None]
  - ANGINA PECTORIS [None]
  - ATRIAL FIBRILLATION [None]
  - HYPERLIPIDAEMIA [None]
  - JOINT SPRAIN [None]
  - SLEEP APNOEA SYNDROME [None]
